FAERS Safety Report 6094809-9 (Version None)
Quarter: 2009Q1

REPORT INFORMATION
  Report Type: 
  Country: None (occurrence: None)
  Receive Date: 20090225
  Receipt Date: 20090213
  Transmission Date: 20090719
  Serious: Yes (Hospitalization)
  Sender: FDA-Public Use
  Company Number: 231510K09USA

PATIENT
  Age: 56 Year
  Sex: Male
  Weight: 120 kg

DRUGS (5)
  1. REBIF [Suspect]
     Indication: MULTIPLE SCLEROSIS
     Dates: start: 20040101, end: 20081201
  2. HYDROCHLOROTHIAZIDE [Concomitant]
  3. VITAMIN B12 [Concomitant]
  4. METFORMIN HCL [Concomitant]
  5. UNSPECIFIED CHOLESTEROL MEDICATION (CHOLESTEROL - AND TRIGLYCERIDES RE [Concomitant]

REACTIONS (2)
  - CORONARY ARTERY OCCLUSION [None]
  - ECONOMIC PROBLEM [None]
